FAERS Safety Report 5427434-0 (Version None)
Quarter: 2007Q3

REPORT INFORMATION
  Report Type: 
  Country: None (occurrence: None)
  Receive Date: 20070828
  Receipt Date: 20070820
  Transmission Date: 20080115
  Serious: No
  Sender: FDA-Public Use
  Company Number: US-ELI_LILLY_AND_COMPANY-US_000235942

PATIENT
  Age: 41 Year
  Sex: Female

DRUGS (5)
  1. GEMZAR [Suspect]
     Indication: BREAST CANCER
     Dosage: 1000 MG/M2, WEEKLY (1/W)
     Route: 042
  2. BIPHOSPHONATE [Concomitant]
     Indication: BREAST CANCER
     Dosage: UNK, UNKNOWN
  3. HERCEPTIN [Concomitant]
     Indication: BREAST CANCER
     Dosage: UNK, UNKNOWN
  4. PACLITAXEL [Concomitant]
     Indication: BREAST CANCER
     Dosage: UNK, UNKNOWN
  5. RADIATION THERAPY [Concomitant]
     Indication: BREAST CANCER
     Dosage: UNK, UNKNOWN

REACTIONS (1)
  - RECALL PHENOMENON [None]
